FAERS Safety Report 8992072 (Version 1)
Quarter: 2012Q4

REPORT INFORMATION
  Report Type: 
  Country: NZ (occurrence: NZ)
  Receive Date: 20121231
  Receipt Date: 20121231
  Transmission Date: 20130627
  Serious: Yes (Hospitalization, Other)
  Sender: FDA-Public Use
  Company Number: PHHY2012NZ114501

PATIENT
  Age: 52 Year
  Sex: Male
  Weight: 70 kg

DRUGS (7)
  1. CLOZARIL [Suspect]
     Indication: PSYCHOTIC DISORDER
     Dosage: 25 mg, UNK
     Route: 048
     Dates: start: 20021210
  2. CLOZARIL [Suspect]
     Dosage: UNK UKN, Dose tapered down
  3. OLANZAPINE [Suspect]
  4. LORAZEPAM [Concomitant]
     Indication: AGITATION
     Dosage: 2 mg, BID
     Route: 030
     Dates: start: 20121212
  5. FORTRAL [Concomitant]
     Indication: MALNUTRITION
     Dosage: UNK UKN, UNK
     Route: 048
     Dates: start: 20121216
  6. FLUCLOXACILLIN [Concomitant]
     Indication: SEPSIS
     Dosage: 2 g, UNK
     Route: 042
     Dates: start: 20121218
  7. HALOPERIDOL [Concomitant]
     Indication: PSYCHOTIC DISORDER
     Dosage: 10 mg, BID
     Route: 030
     Dates: start: 20121217

REACTIONS (5)
  - Psychiatric decompensation [Unknown]
  - Psychotic disorder [Not Recovered/Not Resolved]
  - Abnormal behaviour [Unknown]
  - Loose associations [Unknown]
  - Catatonia [Unknown]
